FAERS Safety Report 24398671 (Version 1)
Quarter: 2024Q4

REPORT INFORMATION
  Report Type: Spontaneous
  Country: US (occurrence: US)
  Receive Date: 20241004
  Receipt Date: 20241004
  Transmission Date: 20250114
  Serious: Yes (Life-Threatening, Hospitalization)
  Sender: MYLAN
  Company Number: US-MYLANLABS-2024M1087753

PATIENT
  Age: 27 Year
  Sex: Male

DRUGS (5)
  1. DILTIAZEM [Suspect]
     Active Substance: DILTIAZEM
     Indication: Atrial fibrillation
     Dosage: UNK
     Route: 065
  2. ADENOSINE [Suspect]
     Active Substance: ADENOSINE
     Indication: Supraventricular tachycardia
     Dosage: UNK
     Route: 065
  3. METHIMAZOLE [Suspect]
     Active Substance: METHIMAZOLE
     Indication: Hyperthyroidism
     Dosage: UNK
     Route: 065
  4. PROPRANOLOL [Suspect]
     Active Substance: PROPRANOLOL HYDROCHLORIDE
     Indication: Hyperthyroidism
     Dosage: UNK
     Route: 065
  5. DEXAMETHASONE [Suspect]
     Active Substance: DEXAMETHASONE
     Indication: Hyperthyroidism
     Dosage: UNK
     Route: 065

REACTIONS (5)
  - Hyperthyroidism [Unknown]
  - Cardiopulmonary failure [Unknown]
  - Pleural effusion [Unknown]
  - Respiratory failure [Unknown]
  - Drug ineffective [Unknown]
